APPROVED DRUG PRODUCT: CORTISPORIN
Active Ingredient: BACITRACIN ZINC; HYDROCORTISONE; NEOMYCIN SULFATE; POLYMYXIN B SULFATE
Strength: 400 UNITS/GM;1%;EQ 3.5MG BASE/GM;10,000 UNITS/GM **Federal Register determination that product was not discontinued or withdrawn for safety or effectiveness reasons**
Dosage Form/Route: OINTMENT;OPHTHALMIC
Application: N050416 | Product #002
Applicant: CASPER PHARMA LLC
Approved: Approved Prior to Jan 1, 1982 | RLD: Yes | RS: No | Type: DISCN